FAERS Safety Report 21889646 (Version 2)
Quarter: 2023Q1

REPORT INFORMATION
  Report Type: Report from Study
  Country: MX (occurrence: MX)
  Receive Date: 20230120
  Receipt Date: 20230224
  Transmission Date: 20230418
  Serious: Yes (Other)
  Sender: FDA-Public Use
  Company Number: MX-002147023-NVSC2023MX012892

PATIENT
  Age: 75 Year
  Sex: Female

DRUGS (3)
  1. FEMARA [Suspect]
     Active Substance: LETROZOLE
     Indication: Neoplasm malignant
     Dosage: 1 DOSAGE FORM, QD (PILL)
     Route: 048
     Dates: end: 202210
  2. FEMARA [Suspect]
     Active Substance: LETROZOLE
     Dosage: 2.5 MG
     Route: 065
  3. KISQALI [Suspect]
     Active Substance: RIBOCICLIB
     Indication: Product used for unknown indication
     Dosage: 200 MG
     Route: 065

REACTIONS (4)
  - Pulmonary oedema [Unknown]
  - Pneumothorax [Unknown]
  - Drug ineffective [Unknown]
  - Product use in unapproved indication [Unknown]
